FAERS Safety Report 11012458 (Version 1)
Quarter: 2015Q1

REPORT INFORMATION
  Report Type: Spontaneous
  Country: US (occurrence: None)
  Receive Date: 20150331
  Receipt Date: 20150331
  Transmission Date: 20150721
  Serious: Yes (Hospitalization)
  Sender: FDA-Public Use
  Company Number: 2014000037A

PATIENT
  Age: 41 Year
  Sex: Female

DRUGS (6)
  1. ATAZANAVIR [Concomitant]
     Active Substance: ATAZANAVIR
  2. MARAVIROC [Concomitant]
     Active Substance: MARAVIROC
  3. RALTEGRAVIR [Concomitant]
     Active Substance: RALTEGRAVIR
  4. DIPHENHYDRAMINE CITRATE, IBUPROFEN [Suspect]
     Active Substance: DIPHENHYDRAMINE CITRATE\IBUPROFEN
     Dosage: ^HANDFUL^, ORAL
     Route: 048
  5. TRAZODONE [Suspect]
     Active Substance: TRAZODONE HYDROCHLORIDE
     Route: 048
  6. RITONAVIR. [Concomitant]
     Active Substance: RITONAVIR

REACTIONS (5)
  - Intentional self-injury [None]
  - Dizziness [None]
  - Bradycardia [None]
  - Somnolence [None]
  - Chest pain [None]
